FAERS Safety Report 4816018-0 (Version None)
Quarter: 2005Q4

REPORT INFORMATION
  Report Type: 
  Country: None (occurrence: None)
  Receive Date: 20051026
  Receipt Date: 20051010
  Transmission Date: 20060501
  Serious: Yes (Hospitalization, Other)
  Sender: FDA-Public Use
  Company Number: USA0507102835

PATIENT
  Age: 68 Year
  Sex: Male

DRUGS (20)
  1. FORTEO [Suspect]
     Indication: OSTEOPOROSIS
     Dosage: 20 UG/1 DAY
     Dates: start: 20050101
  2. FOSAMAX            (ALENDRONATE SOCIUM) [Concomitant]
  3. VIACTIV [Concomitant]
  4. KEFLEX              (DEFALEXIN MONOHYDRATE) [Concomitant]
  5. MIACALCIN [Concomitant]
  6. NORVASC [Concomitant]
  7. ACCUPRIL [Concomitant]
  8. LIPITOR [Concomitant]
  9. FOLIC ACID [Concomitant]
  10. VITAMIN D [Concomitant]
  11. LASIX [Concomitant]
  12. CALCIUM GLUCONATE [Concomitant]
  13. WELLBUTRIN [Concomitant]
  14. ASCORBIC ACID [Concomitant]
  15. NEXIUM [Concomitant]
  16. PLAVIX [Concomitant]
  17. ZANTAC [Concomitant]
  18. ALLOPURINOL [Concomitant]
  19. URSODIOL [Concomitant]
  20. ASPIRIN [Concomitant]

REACTIONS (9)
  - COMA [None]
  - HAEMORRHAGE [None]
  - IATROGENIC INJURY [None]
  - INCISION SITE COMPLICATION [None]
  - PERITONITIS [None]
  - PHARMACEUTICAL PRODUCT COMPLAINT [None]
  - PROCEDURAL COMPLICATION [None]
  - SEPSIS [None]
  - VOLVULUS [None]
